FAERS Safety Report 24996317 (Version 1)
Quarter: 2025Q1

REPORT INFORMATION
  Report Type: Spontaneous
  Country: US (occurrence: US)
  Receive Date: 20250221
  Receipt Date: 20250221
  Transmission Date: 20250409
  Serious: No
  Sender: PFIZER
  Company Number: US-PFIZER INC-202500038991

PATIENT

DRUGS (2)
  1. RITLECITINIB [Suspect]
     Active Substance: RITLECITINIB
     Indication: Alopecia areata
     Dosage: 50 MG, 1X/DAY
  2. RITLECITINIB [Suspect]
     Active Substance: RITLECITINIB
     Dosage: 100 MG, 1X/DAY

REACTIONS (2)
  - Condition aggravated [Unknown]
  - Off label use [Unknown]
